FAERS Safety Report 9192424 (Version 2)
Quarter: 2013Q2

REPORT INFORMATION
  Report Type: Spontaneous
  Country: KR (occurrence: KR)
  Receive Date: 20130327
  Receipt Date: 20130404
  Transmission Date: 20140414
  Serious: Yes (Other)
  Sender: FDA-Public Use
  Company Number: KR-ELI_LILLY_AND_COMPANY-KR201303006819

PATIENT
  Age: 57 Year
  Sex: Female

DRUGS (2)
  1. HUMALOG 25% LISPRO, 75% NPL [Suspect]
     Indication: TYPE 2 DIABETES MELLITUS
     Dosage: 30 U, EACH MORNING
     Route: 058
     Dates: start: 20130130
  2. HUMALOG 25% LISPRO, 75% NPL [Suspect]
     Dosage: 20 U, EACH EVENING
     Route: 058
     Dates: start: 20130130

REACTIONS (1)
  - Brain neoplasm [Unknown]
